FAERS Safety Report 10625459 (Version 1)
Quarter: 2014Q4

REPORT INFORMATION
  Report Type: Spontaneous
  Country: CA (occurrence: CA)
  Receive Date: 20141204
  Receipt Date: 20141204
  Transmission Date: 20150529
  Serious: Yes (Life-Threatening, Hospitalization)
  Sender: FDA-Public Use
  Company Number: CA-JNJFOC-20141116981

PATIENT
  Age: 27 Year
  Sex: Male
  Weight: 90 kg

DRUGS (1)
  1. XARELTO [Suspect]
     Active Substance: RIVAROXABAN
     Indication: PRODUCT USED FOR UNKNOWN INDICATION
     Route: 048

REACTIONS (7)
  - Vision blurred [Unknown]
  - Purpura [Unknown]
  - Blood lactate dehydrogenase increased [Unknown]
  - Thrombotic thrombocytopenic purpura [Unknown]
  - Reticulocyte count abnormal [Unknown]
  - Platelet count decreased [Unknown]
  - Red blood cell schistocytes present [Unknown]
